FAERS Safety Report 9059610 (Version 1)
Quarter: 2013Q1

REPORT INFORMATION
  Report Type: Spontaneous
  Country: US (occurrence: None)
  Receive Date: 20130206
  Receipt Date: 20130206
  Transmission Date: 20140127
  Serious: Yes (Other)
  Sender: FDA-Public Use
  Company Number: None

PATIENT
  Age: 57 Year
  Sex: Female
  Weight: 70 kg

DRUGS (2)
  1. AVASTIN [Suspect]
     Indication: OVARIAN CANCER RECURRENT
     Dosage: 660 MG  EVERY 2 WEEKS  IV DRIP
     Route: 041
     Dates: start: 20111121, end: 20121217
  2. CYCLOPHOSPHAMIDE [Suspect]
     Indication: OVARIAN CANCER RECURRENT
     Dosage: 50 MG DAILY PO
     Route: 048
     Dates: start: 20111121, end: 20121217

REACTIONS (1)
  - Blood alkaline phosphatase increased [None]
